FAERS Safety Report 14262556 (Version 1)
Quarter: 2017Q4

REPORT INFORMATION
  Report Type: Spontaneous
  Country: US (occurrence: US)
  Receive Date: 20171208
  Receipt Date: 20171208
  Transmission Date: 20180321
  Serious: No
  Sender: FDA-Public Use
  Company Number: US-PFIZER INC-2017524485

PATIENT
  Age: 6 Year
  Sex: Male
  Weight: 22.23 kg

DRUGS (2)
  1. QUILLIVANT XR [Suspect]
     Active Substance: METHYLPHENIDATE HYDROCHLORIDE
     Indication: ATTENTION DEFICIT/HYPERACTIVITY DISORDER
     Dosage: WHOLE DOSE
     Dates: start: 2016
  2. QUILLIVANT XR [Suspect]
     Active Substance: METHYLPHENIDATE HYDROCHLORIDE
     Dosage: UNK, 2X/DAY (4ML IN THE MORNING AND 5ML IN THE AFTERNOON)

REACTIONS (4)
  - Feeling abnormal [Unknown]
  - Intentional product misuse [Unknown]
  - Drug effect incomplete [Not Recovered/Not Resolved]
  - Underweight [Unknown]

NARRATIVE: CASE EVENT DATE: 2016
